FAERS Safety Report 8806866 (Version 1)
Quarter: 2012Q4

REPORT INFORMATION
  Report Type: 
  Country: US (occurrence: US)
  Receive Date: 20120925
  Receipt Date: 20120925
  Transmission Date: 20130627
  Serious: Yes (Other)
  Sender: FDA-Public Use
  Company Number: US-PFIZER INC-2012237110

PATIENT
  Age: 74 Year
  Sex: Male
  Weight: 83.9 kg

DRUGS (4)
  1. CELEBREX [Suspect]
     Indication: PAIN
     Dosage: lowest dose, Once
     Dates: start: 20120913, end: 20120913
  2. PIROXICAM [Suspect]
     Indication: PAIN
     Dosage: UNK
  3. LAMOTRIGINE [Concomitant]
     Indication: CONVULSION
     Dosage: 200 mg, 2x/day
  4. LOVASTATIN [Concomitant]
     Indication: BLOOD CHOLESTEROL ABNORMAL
     Dosage: 20 mg, daily

REACTIONS (1)
  - Syncope [Recovered/Resolved]
